FAERS Safety Report 25142098 (Version 1)
Quarter: 2025Q1

REPORT INFORMATION
  Report Type: Report from Study
  Country: IN (occurrence: IN)
  Receive Date: 20250331
  Receipt Date: 20250331
  Transmission Date: 20250408
  Serious: Yes (Death, Other)
  Sender: DAIICHI
  Company Number: IN-AstraZeneca-CH-00834788A

PATIENT
  Age: 54 Year
  Sex: Male

DRUGS (1)
  1. ENHERTU [Suspect]
     Active Substance: FAM-TRASTUZUMAB DERUXTECAN-NXKI
     Indication: Oesophageal adenocarcinoma
     Dosage: 400 MG, ONCE EVERY 3 WK
     Route: 041

REACTIONS (3)
  - Dyspnoea [Fatal]
  - Pulmonary oedema [Fatal]
  - Gait inability [Fatal]

NARRATIVE: CASE EVENT DATE: 20250322
